FAERS Safety Report 16742456 (Version 2)
Quarter: 2019Q4

REPORT INFORMATION
  Report Type: Spontaneous
  Country: US (occurrence: US)
  Receive Date: 20190826
  Receipt Date: 20191209
  Transmission Date: 20200122
  Serious: Yes (Other)
  Sender: FDA-Public Use
  Company Number: US-BRISTOL-MYERS SQUIBB COMPANY-BMS-2019-083797

PATIENT
  Sex: Male

DRUGS (1)
  1. SPRYCEL [Suspect]
     Active Substance: DASATINIB
     Indication: NEUROBLASTOMA
     Dosage: 50 MILLIGRAM, DAILY
     Route: 048
     Dates: start: 20190712

REACTIONS (2)
  - Intentional product use issue [Unknown]
  - Neuroblastoma recurrent [Unknown]
